FAERS Safety Report 7985481-9 (Version None)
Quarter: 2011Q4

REPORT INFORMATION
  Report Type: 
  Country: None (occurrence: None)
  Receive Date: 20111216
  Receipt Date: 20110405
  Transmission Date: 20120403
  Serious: No
  Sender: FDA-Public Use
  Company Number: US-ABBOTT-11P-163-0717074-00

PATIENT
  Sex: Male

DRUGS (2)
  1. NIMBEX [Suspect]
     Indication: NEUROMUSCULAR BLOCKADE
     Dosage: NOT REPORTED.
  2. NIMBEX [Suspect]
     Indication: MECHANICAL VENTILATION

REACTIONS (1)
  - DRUG INEFFECTIVE [None]
